FAERS Safety Report 7457015-9 (Version None)
Quarter: 2011Q2

REPORT INFORMATION
  Report Type: 
  Country: None (occurrence: None)
  Receive Date: 20110504
  Receipt Date: 20110419
  Transmission Date: 20111010
  Serious: Yes (Hospitalization, Other)
  Sender: FDA-Public Use
  Company Number: US-JNJFOC-20110411189

PATIENT
  Age: 50 Year
  Sex: Male

DRUGS (2)
  1. ANTIPSYCHOTICS [Suspect]
     Indication: PRODUCT USED FOR UNKNOWN INDICATION
     Route: 065
  2. ULTRAM [Suspect]
     Indication: PRODUCT USED FOR UNKNOWN INDICATION
     Dosage: TOOK 5 AT ONCE
     Route: 065

REACTIONS (3)
  - OVERDOSE [None]
  - RESPIRATORY ARREST [None]
  - CONVULSION [None]
